FAERS Safety Report 4682787-6 (Version None)
Quarter: 2005Q2

REPORT INFORMATION
  Report Type: 
  Country: None (occurrence: None)
  Receive Date: 20050606
  Receipt Date: 20050526
  Transmission Date: 20051028
  Serious: Yes (Disabling)
  Sender: FDA-Public Use
  Company Number: FI-BRISTOL-MYERS SQUIBB COMPANY-12986428

PATIENT
  Age: 58 Year
  Sex: Male

DRUGS (1)
  1. NEFADAR [Suspect]
     Indication: DEPRESSION
     Route: 048

REACTIONS (3)
  - HYPOAESTHESIA [None]
  - PARAESTHESIA [None]
  - POLYNEUROPATHY [None]
